FAERS Safety Report 20125886 (Version 2)
Quarter: 2022Q1

REPORT INFORMATION
  Report Type: Report from Study
  Country: US (occurrence: US)
  Receive Date: 20211129
  Receipt Date: 20220225
  Transmission Date: 20220424
  Serious: No
  Sender: FDA-Public Use
  Company Number: US-ACADIA PHARMACEUTICALS INC.-ACA-2021-PIM-003922

PATIENT
  Sex: Female

DRUGS (2)
  1. NUPLAZID [Suspect]
     Active Substance: PIMAVANSERIN TARTRATE
     Indication: Parkinson^s disease
     Dosage: 10 MILLIGRAM, ONE TO TWO TABLETS DAILY
     Route: 048
     Dates: start: 20210405
  2. NUPLAZID [Suspect]
     Active Substance: PIMAVANSERIN TARTRATE
     Dosage: 20 MILLIGRAM, QD
     Route: 048
     Dates: start: 20210526

REACTIONS (7)
  - Memory impairment [Unknown]
  - Cognitive disorder [Unknown]
  - Illness [Unknown]
  - Memory impairment [Unknown]
  - Cognitive disorder [Unknown]
  - Confusional state [Unknown]
  - Confusional state [Unknown]
